FAERS Safety Report 14208188 (Version 1)
Quarter: 2017Q4

REPORT INFORMATION
  Report Type: Spontaneous
  Country: US (occurrence: US)
  Receive Date: 20171121
  Receipt Date: 20171121
  Transmission Date: 20180321
  Serious: No
  Sender: FDA-Public Use
  Company Number: US-BAYER-2017-225197

PATIENT
  Sex: Female

DRUGS (2)
  1. MENSTRIDOL [Suspect]
     Active Substance: NAPROXEN SODIUM
     Indication: ABDOMINAL DISTENSION
     Route: 065
  2. MIDOL [ACETYLSALICYLIC ACID,CAFFEINE,CINNAMEDRINE,PHENACETIN] [Concomitant]
     Indication: ABDOMINAL DISTENSION
     Route: 065

REACTIONS (2)
  - Drug ineffective [Unknown]
  - Drug effective for unapproved indication [Unknown]
